FAERS Safety Report 18945962 (Version 1)
Quarter: 2021Q1

REPORT INFORMATION
  Report Type: Spontaneous
  Country: US (occurrence: US)
  Receive Date: 20210226
  Receipt Date: 20210226
  Transmission Date: 20210420
  Serious: Yes (Other)
  Sender: FDA-Public Use
  Company Number: US-TEVA-2021-US-1884769

PATIENT
  Sex: Female

DRUGS (1)
  1. EVEROLIMUS TEVA [Suspect]
     Active Substance: EVEROLIMUS
     Route: 065

REACTIONS (5)
  - Eructation [Recovered/Resolved]
  - Abnormal behaviour [Recovered/Resolved]
  - Product substitution issue [Unknown]
  - Intentional self-injury [Recovered/Resolved]
  - Screaming [Recovered/Resolved]
